FAERS Safety Report 9474740 (Version 1)
Quarter: 2013Q3

REPORT INFORMATION
  Report Type: Spontaneous
  Country: BR (occurrence: BR)
  Receive Date: 20130823
  Receipt Date: 20130823
  Transmission Date: 20140515
  Serious: Yes (Other)
  Sender: FDA-Public Use
  Company Number: BR-PFIZER INC-2013242170

PATIENT
  Age: 69 Year
  Sex: Male
  Weight: 62 kg

DRUGS (3)
  1. VIAGRA [Suspect]
     Dosage: 50 MG 1X/DAY
     Route: 048
     Dates: start: 201305
  2. LOSARTAN [Concomitant]
     Indication: BLOOD PRESSURE INCREASED
     Dosage: 1 CAPSULE DAILY
  3. ROXFLAN [Concomitant]
     Indication: BLOOD PRESSURE INCREASED
     Dosage: 1 CAPSULE ONCE DAILY

REACTIONS (1)
  - Prostatic disorder [Unknown]
